FAERS Safety Report 14867545 (Version 1)
Quarter: 2018Q2

REPORT INFORMATION
  Report Type: Spontaneous
  Country: IT (occurrence: IT)
  Receive Date: 20180508
  Receipt Date: 20180508
  Transmission Date: 20180711
  Serious: Yes (Hospitalization)
  Sender: FDA-Public Use
  Company Number: PHHY2017IT202987

PATIENT
  Age: 66 Year
  Sex: Male

DRUGS (2)
  1. GENTAMICIN. [Suspect]
     Active Substance: GENTAMICIN
     Indication: ENDOCARDITIS BACTERIAL
     Dosage: 400 MG
     Route: 048
     Dates: start: 201605
  2. SULFAMETHOXAZOLE [Suspect]
     Active Substance: SULFAMETHOXAZOLE
     Indication: URINARY TRACT INFECTION
     Dosage: 3840 MG
     Route: 048
     Dates: start: 201511

REACTIONS (7)
  - Balance disorder [Unknown]
  - Therapeutic response decreased [Unknown]
  - Device malfunction [Recovered/Resolved]
  - Heart valve incompetence [Recovered/Resolved]
  - Endocarditis [Recovered/Resolved]
  - Listeriosis [Recovered/Resolved]
  - Pyrexia [Recovered/Resolved]

NARRATIVE: CASE EVENT DATE: 2016
